FAERS Safety Report 25874328 (Version 4)
Quarter: 2025Q4

REPORT INFORMATION
  Report Type: Spontaneous
  Country: US (occurrence: US)
  Receive Date: 20251002
  Receipt Date: 20251031
  Transmission Date: 20260118
  Serious: Yes (Hospitalization)
  Sender: FENNEC PHARMACEUTICALS
  Company Number: US-FENNEC PHARMACEUTICALS, INC.-2025FEN00094

PATIENT
  Age: 41 Year
  Sex: Female
  Weight: 71 kg

DRUGS (9)
  1. PEDMARK [Suspect]
     Active Substance: SODIUM THIOSULFATE
     Dosage: CYCLE 1: 36.6 GRAMS (20 MG/M2) OVER 30-60 MINUTES
     Route: 042
     Dates: start: 20250911, end: 20250911
  2. PEDMARK [Suspect]
     Active Substance: SODIUM THIOSULFATE
     Dosage: CYCLE 2: 36.6 GRAMS (20 MG/M2) OVER 30-60 MINUTES
     Route: 042
     Dates: start: 20250925, end: 20250925
  3. PEDMARK [Suspect]
     Active Substance: SODIUM THIOSULFATE
     Dosage: CYCLE 3: 36.6 GRAMS (20 MG/M2) OVER 30-60 MINUTES
     Route: 042
     Dates: start: 20251002
  4. SOLU-CORTEF [Concomitant]
     Active Substance: HYDROCORTISONE SODIUM SUCCINATE
     Route: 042
  5. CISPLATIN [Concomitant]
     Active Substance: CISPLATIN
  6. OLANZAPINE [Concomitant]
     Active Substance: OLANZAPINE
     Dosage: 5 MG, 1X/DAY NIGHT BEFORE
     Route: 048
  7. OLANZAPINE [Concomitant]
     Active Substance: OLANZAPINE
     Dosage: 1-2 TABLETS AFTER CHEMO AS NEEDED
     Route: 048
  8. LORAZEPAM [Concomitant]
     Active Substance: LORAZEPAM
     Dosage: 0.5 MG 30 MINUTES PRIOR TO PEDMARK
     Route: 048
  9. BENADRYL [Concomitant]
     Active Substance: DIPHENHYDRAMINE HYDROCHLORIDE
     Dosage: 25 MG, 1X/DAY
     Route: 048
     Dates: start: 20250926

REACTIONS (11)
  - Cystitis noninfective [Recovered/Resolved]
  - Retching [Unknown]
  - Infusion site pain [Not Recovered/Not Resolved]
  - Vision blurred [Recovered/Resolved]
  - Injection site bruising [Unknown]
  - Headache [Unknown]
  - Nausea [Unknown]
  - Vomiting [Recovered/Resolved]
  - Decreased appetite [Not Recovered/Not Resolved]
  - Tinnitus [Not Recovered/Not Resolved]
  - Off label use [Unknown]

NARRATIVE: CASE EVENT DATE: 20250901
